FAERS Safety Report 11012618 (Version 1)
Quarter: 2015Q2

REPORT INFORMATION
  Report Type: Spontaneous
  Country: US (occurrence: None)
  Receive Date: 20150407
  Receipt Date: 20150407
  Transmission Date: 20150821
  Serious: Yes (Other)
  Sender: FDA-Public Use
  Company Number: LH201400507

PATIENT
  Age: 38 Year
  Sex: Female

DRUGS (2)
  1. PRENATAL VITAMINS (ASCORBIC ACID, CALCIUM PANTOTHENATE, CYANCOBALAMIN, ERGOCALCIFEROL, NICOTINAMIDE, PYRIDOXINE HYDROCHLORIDE, RETINOL PALMITATE, RIBOFLAVIN, THIAMINE MONONITRATE) [Concomitant]
  2. MAKENA [Suspect]
     Active Substance: HYDROXYPROGESTERONE CAPROATE
     Indication: PREMATURE DELIVERY
     Route: 030
     Dates: start: 20140918, end: 20141205

REACTIONS (1)
  - Premature delivery [None]

NARRATIVE: CASE EVENT DATE: 20141206
